FAERS Safety Report 22187429 (Version 3)
Quarter: 2023Q2

REPORT INFORMATION
  Report Type: Report from Study
  Country: JP (occurrence: None)
  Receive Date: 20230407
  Receipt Date: 20230518
  Transmission Date: 20230721
  Serious: Yes (Hospitalization)
  Sender: FDA-Public Use
  Company Number: 2023A078381

PATIENT
  Age: 79 Year
  Sex: Male
  Weight: 55 kg

DRUGS (11)
  1. ONDEXXYA [Suspect]
     Active Substance: ANDEXANET ALFA
     Indication: Lower gastrointestinal haemorrhage
     Dosage: 400 MG + 480 MG
     Route: 042
     Dates: start: 20230104
  2. NEXIUM [Suspect]
     Active Substance: ESOMEPRAZOLE MAGNESIUM
     Indication: Prophylaxis
     Route: 048
  3. BIO-THREE OD [Concomitant]
     Indication: Prophylaxis
     Route: 048
  4. FEBUXOSTAT [Concomitant]
     Active Substance: FEBUXOSTAT
     Indication: Hyperuricaemia
     Route: 048
  5. CARBAZOCHROME SODIUM SULFONATE [Concomitant]
     Active Substance: CARBAZOCHROME SODIUM SULFONATE
     Indication: Lower gastrointestinal haemorrhage
     Route: 042
     Dates: start: 20230105, end: 20230105
  6. CARBAZOCHROME SODIUM SULFONATE [Concomitant]
     Active Substance: CARBAZOCHROME SODIUM SULFONATE
     Indication: Lower gastrointestinal haemorrhage
     Route: 042
     Dates: start: 20230106, end: 20230106
  7. TRANEXAMIC ACID [Concomitant]
     Active Substance: TRANEXAMIC ACID
     Indication: Lower gastrointestinal haemorrhage
     Route: 065
     Dates: start: 20230105, end: 20230105
  8. TRANEXAMIC ACID [Concomitant]
     Active Substance: TRANEXAMIC ACID
     Indication: Lower gastrointestinal haemorrhage
     Route: 065
     Dates: start: 20230106, end: 20230106
  9. PREDNISOLONE [Concomitant]
     Active Substance: PREDNISOLONE
     Indication: Rheumatoid arthritis
     Route: 048
     Dates: start: 20230227
  10. ALBUMINAR [Concomitant]
     Active Substance: ALBUMIN HUMAN
     Indication: Lower gastrointestinal haemorrhage
     Dates: start: 20230106, end: 20230106
  11. ALBUMINAR [Concomitant]
     Active Substance: ALBUMIN HUMAN
     Indication: Lower gastrointestinal haemorrhage
     Dates: start: 20230108, end: 20230108

REACTIONS (3)
  - Pyrexia [Recovering/Resolving]
  - Off label use [Unknown]
  - Rheumatoid arthritis [Not Recovered/Not Resolved]

NARRATIVE: CASE EVENT DATE: 20230104
